FAERS Safety Report 4559069-6 (Version None)
Quarter: 2005Q1

REPORT INFORMATION
  Report Type: 
  Country: None (occurrence: None)
  Receive Date: 20050124
  Receipt Date: 20050113
  Transmission Date: 20050727
  Serious: Yes (Death, Hospitalization)
  Sender: FDA-Public Use
  Company Number: FR-BRISTOL-MYERS SQUIBB COMPANY-12826004

PATIENT
  Age: 53 Year
  Sex: Female

DRUGS (5)
  1. MUCOMYST [Suspect]
     Route: 048
  2. MEDROL [Suspect]
     Route: 048
     Dates: start: 20030315
  3. OMEPRAZOLE [Suspect]
     Route: 048
  4. URBANYL [Suspect]
     Route: 048
  5. LAMICTAL [Concomitant]
     Dates: end: 20030709

REACTIONS (6)
  - ACUTE RESPIRATORY DISTRESS SYNDROME [None]
  - DIABETES MELLITUS [None]
  - INTERSTITIAL LUNG DISEASE [None]
  - PNEUMOCYSTIS JIROVECI PNEUMONIA [None]
  - RESPIRATORY DISTRESS [None]
  - RESPIRATORY FAILURE [None]
